FAERS Safety Report 8576810-6 (Version None)
Quarter: 2012Q3

REPORT INFORMATION
  Report Type: 
  Country: None (occurrence: None)
  Receive Date: 20120807
  Receipt Date: 20120803
  Transmission Date: 20120928
  Serious: Yes (Hospitalization)
  Sender: FDA-Public Use
  Company Number: US-AMGEN-US251232

PATIENT
  Age: 58 Year
  Sex: Female

DRUGS (21)
  1. FERRLECIT [Concomitant]
  2. ATORVASTATIN CALCIUM [Concomitant]
  3. PRAVASTATIN [Concomitant]
  4. DOCUSATE CALCIUM [Concomitant]
  5. RENALTABS [Concomitant]
  6. LACTULOSE [Concomitant]
  7. ASPIRIN [Concomitant]
  8. METOPROLOL TARTRATE [Concomitant]
  9. DOXERCALCIFEROL [Concomitant]
  10. BENZONATATE [Concomitant]
  11. VENLAFAXINE HCL [Concomitant]
  12. GABAPENTIN [Concomitant]
  13. AMITRIPTYLINE HCL [Concomitant]
  14. ENALAPRIL MALEATE [Concomitant]
  15. CINACALCET HYDROCHLORIDE [Suspect]
     Indication: HYPERPARATHYROIDISM SECONDARY
     Dosage: UNK UNK, QD
     Route: 048
     Dates: start: 20071001
  16. EPOGEN [Concomitant]
  17. PHOSLO [Concomitant]
  18. RENAGEL [Concomitant]
  19. NIFEDIPINE [Concomitant]
  20. LANTUS [Concomitant]
  21. LORAZEPAM [Concomitant]

REACTIONS (1)
  - GASTROOESOPHAGEAL REFLUX DISEASE [None]
